FAERS Safety Report 4771840-4 (Version None)
Quarter: 2005Q3

REPORT INFORMATION
  Report Type: 
  Country: None (occurrence: None)
  Receive Date: 20050916
  Receipt Date: 20050907
  Transmission Date: 20060218
  Serious: Yes (Death)
  Sender: FDA-Public Use
  Company Number: US-JNJFOC-20050901975

PATIENT
  Age: 30 Year
  Sex: Male

DRUGS (3)
  1. METHYLPHENIDATE HCL [Suspect]
     Indication: DRUG USE FOR UNKNOWN INDICATION
     Route: 048
  2. GASOLINE [Suspect]
     Indication: DRUG USE FOR UNKNOWN INDICATION
  3. CHLOROPHENOXY HERBICIDE [Suspect]
     Indication: DRUG USE FOR UNKNOWN INDICATION

REACTIONS (12)
  - CARDIAC ARREST [None]
  - COAGULOPATHY [None]
  - COMA [None]
  - COMPLETED SUICIDE [None]
  - HAEMOLYSIS [None]
  - HYPOTENSION [None]
  - INTENTIONAL MISUSE [None]
  - MULTIPLE DRUG OVERDOSE [None]
  - OLIGURIA [None]
  - PNEUMONITIS [None]
  - TACHYCARDIA [None]
  - VOMITING [None]
